FAERS Safety Report 19112997 (Version 1)
Quarter: 2021Q2

REPORT INFORMATION
  Report Type: Spontaneous
  Country: RU (occurrence: RU)
  Receive Date: 20210408
  Receipt Date: 20210408
  Transmission Date: 20210717
  Serious: Yes (Other)
  Sender: FDA-Public Use
  Company Number: RU-ORGANON-O2104RUS000203

PATIENT
  Age: 39 Year
  Sex: Female
  Weight: 72 kg

DRUGS (7)
  1. LIPRIMAR [Suspect]
     Active Substance: ATORVASTATIN CALCIUM
     Indication: ARTERIOSCLEROSIS
  2. TICAGRELOR. [Concomitant]
     Active Substance: TICAGRELOR
     Indication: CORONARY ANGIOPLASTY
     Dosage: 60 MILLIGRAM PER OS
     Route: 048
     Dates: start: 2018
  3. PERINDOPRIL [Concomitant]
     Active Substance: PERINDOPRIL
     Indication: HYPERTENSIVE HEART DISEASE
     Dosage: 10 MILLIGRAM PER OS
     Route: 048
     Dates: start: 2019
  4. EZETROL [Suspect]
     Active Substance: EZETIMIBE
     Indication: TYPE IIA HYPERLIPIDAEMIA
     Dosage: 10 MILLIGRAM PER OS
     Route: 048
     Dates: start: 2019
  5. EZETROL [Suspect]
     Active Substance: EZETIMIBE
     Indication: ARTERIOSCLEROSIS
  6. CARVEDILOL. [Concomitant]
     Active Substance: CARVEDILOL
     Indication: CORONARY ARTERY DISEASE
     Dosage: 25 MILLIGRAM PER OS
     Route: 048
     Dates: start: 2018
  7. LIPRIMAR [Suspect]
     Active Substance: ATORVASTATIN CALCIUM
     Indication: TYPE IIA HYPERLIPIDAEMIA
     Dosage: 80 MILLIGRAM PER OS
     Route: 048
     Dates: start: 2016

REACTIONS (1)
  - Drug ineffective [Unknown]
